FAERS Safety Report 23944750 (Version 1)
Quarter: 2024Q2

REPORT INFORMATION
  Report Type: Spontaneous
  Country: GB (occurrence: GB)
  Receive Date: 20240606
  Receipt Date: 20240606
  Transmission Date: 20240715
  Serious: Yes (Other)
  Sender: FDA-Public Use
  Company Number: GB-MHRA-TPP27522720C18525499YC1717497091208

PATIENT
  Age: 79 Year
  Sex: Male
  Weight: 86 kg

DRUGS (27)
  1. LINAGLIPTIN [Suspect]
     Active Substance: LINAGLIPTIN
     Indication: Product used for unknown indication
     Dates: start: 20240515
  2. ISOSORBIDE MONONITRATE [Concomitant]
     Active Substance: ISOSORBIDE MONONITRATE
     Indication: Product used for unknown indication
     Dosage: AS PER CARDIOLOGY.
     Dates: start: 20240510
  3. BALNEUM [Concomitant]
     Indication: Product used for unknown indication
     Dates: start: 20240311, end: 20240408
  4. PROCHLORPERAZINE [Concomitant]
     Active Substance: PROCHLORPERAZINE
     Indication: Product used for unknown indication
     Dosage: 1 TDS PRN
     Dates: start: 20240311, end: 20240312
  5. BETAMETHASONE VALERATE [Concomitant]
     Active Substance: BETAMETHASONE VALERATE
     Indication: Product used for unknown indication
     Dates: start: 20240318, end: 20240325
  6. FLUCLOXACILLIN [Concomitant]
     Active Substance: FLUCLOXACILLIN
     Indication: Product used for unknown indication
     Dates: start: 20240318, end: 20240325
  7. DECAPEPTYL [Concomitant]
     Indication: Product used for unknown indication
     Dosage: USE AS DIRECTED
     Dates: start: 20240322
  8. ALBUTEROL [Concomitant]
     Active Substance: ALBUTEROL
     Indication: Product used for unknown indication
     Dosage: FOR REVERSIBILITY SPIROMETRY
     Dates: start: 20220331
  9. GLICLAZIDE [Concomitant]
     Active Substance: GLICLAZIDE
     Indication: Product used for unknown indication
     Dosage: IN MORNING AND AT TEATIME
     Dates: start: 20230207
  10. FEXOFENADINE [Concomitant]
     Active Substance: FEXOFENADINE HYDROCHLORIDE
     Indication: Product used for unknown indication
     Dates: start: 20230321
  11. CONTOUR TS [Concomitant]
     Indication: Product used for unknown indication
     Dosage: AS DIRECTED
     Dates: start: 20230403, end: 20240429
  12. DERMACOOL [Concomitant]
     Indication: Product used for unknown indication
     Dosage: APPLY AS NEEDED TO TAKE THE HEAT OUT OF ITCHING...
     Dates: start: 20230605
  13. BISOPROLOL [Concomitant]
     Active Substance: BISOPROLOL\BISOPROLOL FUMARATE
     Indication: Product used for unknown indication
     Dates: start: 20230620
  14. DERMOL [Concomitant]
     Active Substance: BENZALKONIUM CHLORIDE\CHLORHEXIDINE HYDROCHLORIDE\ISOPROPYL MYRISTATE\PARAFFIN
     Indication: Product used for unknown indication
     Dosage: USE AS DIRECTED
     Dates: start: 20231101
  15. CLOBETASOL [Concomitant]
     Active Substance: CLOBETASOL
     Indication: Product used for unknown indication
     Dosage: APPLY WHEN REQUIRED
     Dates: start: 20231102
  16. UMECLIDINIUM BROMIDE\VILANTEROL TRIFENATATE [Concomitant]
     Active Substance: UMECLIDINIUM BROMIDE\VILANTEROL TRIFENATATE
     Indication: Product used for unknown indication
     Route: 055
     Dates: start: 20231227
  17. ASPIRIN [Concomitant]
     Active Substance: ASPIRIN
     Indication: Product used for unknown indication
     Dates: start: 20231227
  18. BETAHISTINE [Concomitant]
     Active Substance: BETAHISTINE
     Indication: Product used for unknown indication
     Dosage: ONE TO BE TAKEN THREE TIMES A DAY PRN
     Dates: start: 20231227
  19. 3M CAVILON ANTIFUNGAL [Concomitant]
     Active Substance: MICONAZOLE NITRATE
     Indication: Product used for unknown indication
     Dosage: AS NEEDED
     Dates: start: 20231227
  20. CONTOUR PLUS [Concomitant]
     Indication: Product used for unknown indication
     Dosage: USE AS DIRECTED
     Dates: start: 20231227
  21. NITROGLYCERIN [Concomitant]
     Active Substance: NITROGLYCERIN
     Indication: Product used for unknown indication
     Dosage: ONE SPRAY UNDER THE TONGUE AS NEEDED
     Route: 060
     Dates: start: 20231227
  22. ISOTARD [Concomitant]
     Indication: Product used for unknown indication
     Dosage: AS PER CARDIOLOGY
     Dates: start: 20231227
  23. LANSOPRAZOLE [Concomitant]
     Active Substance: LANSOPRAZOLE
     Indication: Ill-defined disorder
     Dates: start: 20231227
  24. METFORMIN [Concomitant]
     Active Substance: METFORMIN HYDROCHLORIDE
     Indication: Product used for unknown indication
     Dates: start: 20231227
  25. MICROLET [Concomitant]
     Indication: Ill-defined disorder
     Dosage: AS DIRECTED
     Dates: start: 20231227
  26. RAMIPRIL [Concomitant]
     Active Substance: RAMIPRIL
     Indication: Product used for unknown indication
     Dates: start: 20231227
  27. ROSUVASTATIN [Concomitant]
     Active Substance: ROSUVASTATIN
     Indication: Product used for unknown indication
     Dates: start: 20231227

REACTIONS (1)
  - Dermatitis bullous [Recovering/Resolving]

NARRATIVE: CASE EVENT DATE: 20240604
